FAERS Safety Report 5497648-2 (Version None)
Quarter: 2007Q4

REPORT INFORMATION
  Report Type: 
  Country: None (occurrence: None)
  Receive Date: 20071025
  Receipt Date: 20071012
  Transmission Date: 20080405
  Serious: Yes (Other)
  Sender: FDA-Public Use
  Company Number: US-RANBAXY-2007RR-10718

PATIENT

DRUGS (3)
  1. SPIRONOLACTONE RPG 50 MG COMPRIME PELLICULE [Suspect]
  2. PHENYTOIN [Suspect]
  3. HYDROCHLOROTHIAZIDE [Suspect]

REACTIONS (1)
  - POLYP [None]
